FAERS Safety Report 23645325 (Version 1)
Quarter: 2024Q1

REPORT INFORMATION
  Report Type: Spontaneous
  Country: DE (occurrence: DE)
  Receive Date: 20240318
  Receipt Date: 20240318
  Transmission Date: 20240410
  Serious: Yes (Death)
  Sender: FDA-Public Use
  Company Number: DE-GENMAB-2024-00882

PATIENT
  Age: 51 Year
  Sex: Male
  Weight: 70 kg

DRUGS (3)
  1. EPCORITAMAB [Suspect]
     Active Substance: EPCORITAMAB
     Indication: Diffuse large B-cell lymphoma refractory
     Dosage: FREQUENCY TEXT:: ONCE
     Route: 058
     Dates: start: 20240123
  2. R DHAC [Concomitant]
     Indication: Diffuse large B-cell lymphoma refractory
     Dosage: UNK
     Dates: start: 20240108
  3. TOCILIZUMAB [Concomitant]
     Active Substance: TOCILIZUMAB
     Indication: Product used for unknown indication
     Dosage: 600 MG FREQUENCY TEXT: ONCE
     Dates: start: 20240127, end: 20240127

REACTIONS (3)
  - Death [Fatal]
  - Drug ineffective [Unknown]
  - Abdominal pain [Not Recovered/Not Resolved]

NARRATIVE: CASE EVENT DATE: 20240101
